FAERS Safety Report 14036593 (Version 1)
Quarter: 2017Q4

REPORT INFORMATION
  Report Type: Spontaneous
  Country: US (occurrence: US)
  Receive Date: 20171003
  Receipt Date: 20171003
  Transmission Date: 20180321
  Serious: Yes (Hospitalization)
  Sender: FDA-Public Use
  Company Number: US-ROCHE-1970627

PATIENT
  Sex: Male

DRUGS (6)
  1. VITAMIN D3 [Concomitant]
     Active Substance: CHOLECALCIFEROL
  2. PREDNISONE. [Concomitant]
     Active Substance: PREDNISONE
  3. ZELBORAF [Suspect]
     Active Substance: VEMURAFENIB
     Indication: LUNG NEOPLASM MALIGNANT
     Dosage: 240, Q12
     Route: 048
     Dates: start: 20170712
  4. TRIAMCINOLONE ACETONIDE. [Concomitant]
     Active Substance: TRIAMCINOLONE ACETONIDE
  5. TAMSULOSIN HCL [Concomitant]
     Active Substance: TAMSULOSIN
  6. NEXIUM [Concomitant]
     Active Substance: ESOMEPRAZOLE MAGNESIUM

REACTIONS (1)
  - Sunburn [Unknown]
